FAERS Safety Report 8466528 (Version 3)
Quarter: 2015Q4

REPORT INFORMATION
  Report Type: Spontaneous
  Country: US (occurrence: US)
  Receive Date: 20120319
  Receipt Date: 20151023
  Transmission Date: 20160305
  Serious: Yes (Other)
  Sender: FDA-Public Use
  Company Number: US-ASTRAZENECA-2012SE16803

PATIENT
  Age: 60 Year
  Sex: Male

DRUGS (3)
  1. NEXIUM [Suspect]
     Active Substance: ESOMEPRAZOLE MAGNESIUM
     Route: 048
  2. NEXIUM [Suspect]
     Active Substance: ESOMEPRAZOLE MAGNESIUM
     Indication: DYSPEPSIA
     Route: 048
  3. CRESTOR [Suspect]
     Active Substance: ROSUVASTATIN CALCIUM
     Route: 048

REACTIONS (8)
  - Hiatus hernia [Unknown]
  - Erosive oesophagitis [Unknown]
  - Dyspepsia [Unknown]
  - Bone disorder [Unknown]
  - Intentional product misuse [Unknown]
  - Fatigue [Unknown]
  - Abdominal pain upper [Unknown]
  - Drug dose omission [Unknown]
